FAERS Safety Report 9353213 (Version 1)
Quarter: 2013Q2

REPORT INFORMATION
  Report Type: Spontaneous
  Country: US (occurrence: None)
  Receive Date: 20130617
  Receipt Date: 20130617
  Transmission Date: 20140414
  Serious: No
  Sender: FDA-Public Use
  Company Number: None

PATIENT
  Sex: Male

DRUGS (1)
  1. AMLODIPINE [Suspect]
     Dosage: 5 MG 1 DAY TABLET; 90 DEA13K3403877
     Route: 048
     Dates: start: 20090930, end: 20121221

REACTIONS (4)
  - Local swelling [None]
  - Local swelling [None]
  - Asthenia [None]
  - Gait disturbance [None]
